FAERS Safety Report 8906824 (Version 2)
Quarter: 2013Q3

REPORT INFORMATION
  Report Type: Report from Study
  Country: US (occurrence: US)
  Receive Date: 20121114
  Receipt Date: 20130808
  Transmission Date: 20140515
  Serious: Yes (Hospitalization, Other)
  Sender: FDA-Public Use
  Company Number: US-ELI_LILLY_AND_COMPANY-US201204001915

PATIENT
  Age: 71 Year
  Sex: Female

DRUGS (16)
  1. TERIPARATIDE [Suspect]
     Indication: OSTEOPOROSIS
     Dosage: 20 UG, QD
     Route: 058
     Dates: start: 20120404
  2. TERIPARATIDE [Suspect]
     Dosage: 20 UG, QD
     Route: 058
  3. TERIPARATIDE [Suspect]
     Dosage: 20 UG, QD
     Route: 058
  4. TERIPARATIDE [Suspect]
     Dosage: 20 UG, QD
     Route: 058
  5. PARNATE [Concomitant]
     Dosage: UNK
  6. ASPIRIN [Concomitant]
     Dosage: UNK
  7. NEXIUM [Concomitant]
     Dosage: 40 MG, BID
  8. LUNESTA [Concomitant]
     Dosage: 3 MG, EACH EVENING
  9. SIMVASTATIN [Concomitant]
     Dosage: UNK
  10. DIAZEPAM [Concomitant]
     Dosage: 5 MG, UNK
  11. PREVACID [Concomitant]
     Dosage: UNK
  12. LORCET 10/650 [Concomitant]
     Dosage: UNK
  13. SEROQUEL [Concomitant]
     Dosage: 100 MG, EACH EVENING
  14. VITAMIN D [Concomitant]
     Dosage: 10000 U, OTHER
  15. B12 [Concomitant]
     Dosage: UNK UNK, MONTHLY (1/M)
  16. CALCIUM [Concomitant]
     Dosage: UNK, QD

REACTIONS (11)
  - Hip fracture [Unknown]
  - Fall [Unknown]
  - Transient ischaemic attack [Unknown]
  - Cerebrovascular accident [Unknown]
  - Dizziness [Unknown]
  - Fear of falling [Unknown]
  - Gait disturbance [Unknown]
  - Impaired healing [Unknown]
  - Pain [Unknown]
  - Back pain [Unknown]
  - Device misuse [Unknown]
